FAERS Safety Report 7298915-2 (Version None)
Quarter: 2011Q1

REPORT INFORMATION
  Report Type: 
  Country: None (occurrence: None)
  Receive Date: 20110217
  Receipt Date: 20110214
  Transmission Date: 20110831
  Serious: Yes (Hospitalization)
  Sender: FDA-Public Use
  Company Number: CO-ROCHE-759684

PATIENT
  Sex: Female

DRUGS (5)
  1. PREDNISOLONE [Concomitant]
     Route: 048
  2. CELLCEPT [Suspect]
     Dosage: FREQUENCY: QD
     Route: 048
     Dates: start: 20080910, end: 20101120
  3. OMEPRAZOLE [Concomitant]
     Indication: PROPHYLAXIS
     Dosage: FREQUENCY:QD
     Route: 048
  4. LOSARTAN [Concomitant]
     Indication: HYPERTENSION
     Dosage: FREQUENCY: QD
     Route: 048
  5. CYCLOSPORINE [Concomitant]
     Dosage: FREQUENCY:QD
     Route: 048

REACTIONS (1)
  - HEPATIC CYST [None]
